FAERS Safety Report 4378616-0 (Version None)
Quarter: 2004Q2

REPORT INFORMATION
  Report Type: 
  Country: None (occurrence: None)
  Receive Date: 20040610
  Receipt Date: 20040604
  Transmission Date: 20050107
  Serious: Yes (Other)
  Sender: FDA-Public Use
  Company Number: 2004-06-0179

PATIENT
  Age: 46 Year
  Sex: Male
  Weight: 94 kg

DRUGS (4)
  1. NEOCLARITYN (DESLORATADINE) TABLETS ^LIKE CLARINEX^ [Suspect]
     Indication: SEASONAL ALLERGY
     Dosage: 10 MG ORAL
     Route: 047
     Dates: start: 20040519, end: 20040522
  2. CARBAMAZEPINE [Concomitant]
  3. CLOBAZAM [Concomitant]
  4. ATENOLOL [Concomitant]

REACTIONS (1)
  - GRAND MAL CONVULSION [None]
